FAERS Safety Report 4767495-5 (Version None)
Quarter: 2005Q3

REPORT INFORMATION
  Report Type: 
  Country: None (occurrence: None)
  Receive Date: 20050913
  Receipt Date: 20050902
  Transmission Date: 20060218
  Serious: Yes (Other)
  Sender: FDA-Public Use
  Company Number: US-JNJFOC-20050901741

PATIENT
  Sex: Male
  Weight: 70.5 kg

DRUGS (2)
  1. LEVAQUIN [Suspect]
     Route: 048
     Dates: start: 20050830, end: 20050902
  2. VITAMINS [Concomitant]

REACTIONS (6)
  - AGEUSIA [None]
  - ANOSMIA [None]
  - CENTRAL NERVOUS SYSTEM STIMULATION [None]
  - DYSGEUSIA [None]
  - INSOMNIA [None]
  - NERVOUSNESS [None]
